FAERS Safety Report 9172286 (Version 2)
Quarter: 2013Q3

REPORT INFORMATION
  Report Type: Spontaneous
  Country: FR (occurrence: FR)
  Receive Date: 20130319
  Receipt Date: 20130828
  Transmission Date: 20140515
  Serious: Yes (Death, Life-Threatening)
  Sender: FDA-Public Use
  Company Number: FR-BAXTER-2013BAX009429

PATIENT
  Age: 54 Year
  Sex: Female

DRUGS (1)
  1. HOLOXAN 2000 MG, POUDRE POUR USAGE PARENT?RAL [Suspect]
     Indication: CHEMOTHERAPY
     Route: 042
     Dates: start: 20130218, end: 20130219

REACTIONS (3)
  - Encephalopathy [Recovered/Resolved with Sequelae]
  - Acute coronary syndrome [Fatal]
  - Malignant neoplasm progression [Fatal]
